FAERS Safety Report 10335350 (Version 2)
Quarter: 2014Q3

REPORT INFORMATION
  Report Type: Spontaneous
  Country: US (occurrence: US)
  Receive Date: 20140723
  Receipt Date: 20140723
  Transmission Date: 20150326
  Serious: No
  Sender: FDA-Public Use
  Company Number: US-UNITED THERAPEUTICS-UTC-043267

PATIENT
  Sex: Female
  Weight: 90.71 kg

DRUGS (4)
  1. REMODULIN [Suspect]
     Active Substance: TREPROSTINIL
     Dosage: 0.040 UG/KG/MIN
     Route: 058
     Dates: start: 20130628
  2. ADCIRCA [Concomitant]
     Active Substance: TADALAFIL
  3. COUMADIN [Concomitant]
     Active Substance: WARFARIN SODIUM
  4. LETAIRIS [Concomitant]
     Active Substance: AMBRISENTAN

REACTIONS (5)
  - Infusion site erythema [Unknown]
  - Infusion site pain [Unknown]
  - Infusion site swelling [Unknown]
  - Injection site pain [Unknown]
  - Device dislocation [Unknown]
